FAERS Safety Report 18328859 (Version 1)
Quarter: 2020Q3

REPORT INFORMATION
  Report Type: Spontaneous
  Country: GB (occurrence: GB)
  Receive Date: 20200930
  Receipt Date: 20200930
  Transmission Date: 20201103
  Serious: Yes (Hospitalization)
  Sender: FDA-Public Use
  Company Number: GB-PFIZER INC-2020372003

PATIENT
  Age: 12 Year
  Sex: Female

DRUGS (15)
  1. TOBRAMYCIN. [Concomitant]
     Active Substance: TOBRAMYCIN
     Indication: STAPHYLOCOCCAL INFECTION
     Dosage: 4.5 MG/KG, DAILY (STARTING DOSE), GIVEN 8?HOURLY
  2. CREON [Concomitant]
     Active Substance: PANCRELIPASE AMYLASE\PANCRELIPASE LIPASE\PANCRELIPASE PROTEASE
     Dosage: UNK
  3. GAVISCON PLUS [Concomitant]
     Dosage: UNK
  4. FLUTICASONE. [Concomitant]
     Active Substance: FLUTICASONE
     Dosage: UNK
     Route: 055
  5. TOBRAMYCIN. [Concomitant]
     Active Substance: TOBRAMYCIN
     Dosage: 120 MG, (GIVEN OVER 5 MIN), TEST DOSE
  6. KETOVITE [VITAMINS NOS] [Concomitant]
     Dosage: UNK
  7. CEFTAZIDIME. [Suspect]
     Active Substance: CEFTAZIDIME
     Indication: STAPHYLOCOCCAL INFECTION
     Dosage: 300 MG/KG, DAILY, GIVEN 8?HOURLY
     Route: 042
  8. COLOMYCIN IP [Concomitant]
     Indication: STAPHYLOCOCCAL INFECTION
     Dosage: 0.6 MEGA UNITS, 3X/DAY, GIVEN 8?HOURLY
     Route: 042
  9. DORNASE ALFA. [Concomitant]
     Active Substance: DORNASE ALFA
     Dosage: UNK
  10. CEFTAZIDIME. [Suspect]
     Active Substance: CEFTAZIDIME
     Indication: RESPIRATORY TRACT INFECTION
     Dosage: 3 G, OVER 6 MINS (TEST DOSE)
     Route: 040
  11. TOBRAMYCIN. [Concomitant]
     Active Substance: TOBRAMYCIN
     Indication: RESPIRATORY TRACT INFECTION
     Dosage: 13 MG/KG, DAILY (INCREASED ACC DRUG LEVEL), GIVEN 8?HOURLY
     Route: 042
  12. VITAMIN E NATURAL [TOCOPHEROL] [Concomitant]
     Dosage: UNK
  13. SALBUTAMOL [Concomitant]
     Active Substance: ALBUTEROL
     Dosage: UNK
     Route: 055
  14. COLOMYCIN IP [Concomitant]
     Indication: RESPIRATORY TRACT INFECTION
     Dosage: 0.6 MEGA UNITS, OVER 30 MINS (TEST DOSE)
     Route: 042
  15. CISAPRIDE [Concomitant]
     Active Substance: CISAPRIDE
     Dosage: UNK

REACTIONS (2)
  - Pyrexia [Recovered/Resolved]
  - Myelosuppression [Recovered/Resolved]
